FAERS Safety Report 4806264-4 (Version None)
Quarter: 2005Q4

REPORT INFORMATION
  Report Type: 
  Country: None (occurrence: None)
  Receive Date: 20051021
  Receipt Date: 20050414
  Transmission Date: 20060501
  Serious: Yes (Hospitalization, Disabling)
  Sender: FDA-Public Use
  Company Number: 2005UW05897

PATIENT
  Age: 67 Year
  Sex: Female

DRUGS (21)
  1. CRESTOR [Suspect]
     Indication: BLOOD CHOLESTEROL INCREASED
     Route: 048
     Dates: start: 20040401, end: 20040712
  2. CRESTOR [Suspect]
     Route: 048
  3. CRESTOR [Suspect]
     Route: 048
     Dates: start: 20040501, end: 20040701
  4. HYDROCHLOROTHIAZIDE [Concomitant]
  5. POTASSIUM CHLORIDE ER [Concomitant]
  6. CELEXA [Concomitant]
     Dates: start: 20040721
  7. DIAZEPAM [Concomitant]
  8. HYDROCODONE BITARTRATE + ACETAMINOPHEN [Concomitant]
  9. ZITHROMAX [Concomitant]
  10. SU-TUSS HD [Concomitant]
  11. CYCLOBENZAPRINE [Concomitant]
  12. VISICOL [Concomitant]
  13. NEXIUM [Concomitant]
     Route: 048
     Dates: start: 20040101
  14. LEVOXYL [Concomitant]
  15. ERYTHROMYCIN [Concomitant]
  16. VICODIN [Concomitant]
     Dosage: 1 TAB Q4HRS PRN
     Dates: start: 20040721
  17. RENAGEL [Concomitant]
     Dates: start: 20040730
  18. NORVASC [Concomitant]
     Dates: start: 20040101
  19. SODIUM BICARBONATE [Concomitant]
     Dates: start: 20041129
  20. ZOCOR [Concomitant]
     Indication: BLOOD CHOLESTEROL INCREASED
     Dates: start: 19950101, end: 20040101
  21. LIPITOR [Concomitant]
     Indication: BLOOD CHOLESTEROL INCREASED
     Dates: start: 19950101

REACTIONS (32)
  - ANXIETY [None]
  - BLOOD CHLORIDE DECREASED [None]
  - BLOOD GLUCOSE DECREASED [None]
  - BLOOD PRESSURE INCREASED [None]
  - BLOOD SODIUM DECREASED [None]
  - CHRONIC FATIGUE SYNDROME [None]
  - CONTUSION [None]
  - DEPRESSION [None]
  - DIALYSIS [None]
  - DIVERTICULUM [None]
  - DRUG INTOLERANCE [None]
  - ELECTROLYTE IMBALANCE [None]
  - FALL [None]
  - FIBROMYALGIA [None]
  - HAEMODIALYSIS [None]
  - HAEMORRHAGE [None]
  - HAEMORRHOIDS [None]
  - HIATUS HERNIA [None]
  - HYPERCHOLESTEROLAEMIA [None]
  - HYPERKALAEMIA [None]
  - HYPOTHYROIDISM [None]
  - MENTAL STATUS CHANGES [None]
  - METABOLIC ACIDOSIS [None]
  - MULTIPLE MYELOMA [None]
  - OSTEOARTHRITIS [None]
  - OSTEOPOROSIS [None]
  - PAIN [None]
  - POLYTRAUMATISM [None]
  - RENAL DISORDER [None]
  - RENAL FAILURE ACUTE [None]
  - RENAL FAILURE CHRONIC [None]
  - RHABDOMYOLYSIS [None]
